FAERS Safety Report 5009181-2 (Version None)
Quarter: 2006Q2

REPORT INFORMATION
  Report Type: 
  Country: None (occurrence: None)
  Receive Date: 20060519
  Receipt Date: 20060505
  Transmission Date: 20061013
  Serious: Yes (Hospitalization)
  Sender: FDA-Public Use
  Company Number: 2006MP000660

PATIENT
  Sex: 0

DRUGS (1)
  1. GLIADEL [Suspect]
     Dosage: ICER
     Dates: start: 20060101, end: 20060101

REACTIONS (2)
  - BRAIN OEDEMA [None]
  - STATUS EPILEPTICUS [None]
